FAERS Safety Report 22007658 (Version 1)
Quarter: 2023Q1

REPORT INFORMATION
  Report Type: Report from Study
  Country: US (occurrence: US)
  Receive Date: 20230218
  Receipt Date: 20230218
  Transmission Date: 20230418
  Serious: Yes (Death, Hospitalization, Other)
  Sender: FDA-Public Use
  Company Number: US-TORRENT-00012428

PATIENT
  Age: 54 Year
  Sex: Female

DRUGS (9)
  1. ROSUVASTATIN [Suspect]
     Active Substance: ROSUVASTATIN
     Indication: Product used for unknown indication
     Dosage: UNKNOWN
     Route: 048
  2. ACETAMINOPHEN [Suspect]
     Active Substance: ACETAMINOPHEN
     Indication: Product used for unknown indication
     Dosage: UNKNOWN
     Route: 048
  3. AMLODIPINE [Suspect]
     Active Substance: AMLODIPINE BESYLATE
     Indication: Product used for unknown indication
     Dosage: UNKNOWN
     Route: 048
  4. BUPROPION [Suspect]
     Active Substance: BUPROPION
     Indication: Product used for unknown indication
     Dosage: UNKNOWN
     Route: 048
  5. DIPHENHYDRAMINE [Suspect]
     Active Substance: DIPHENHYDRAMINE
     Indication: Product used for unknown indication
     Dosage: UNKNOWN
     Route: 048
  6. PHENTERMINE [Suspect]
     Active Substance: PHENTERMINE
     Indication: Product used for unknown indication
     Dosage: UNKNOWN
     Route: 048
  7. SALICYLATE [Suspect]
     Active Substance: SALICYLIC ACID
     Indication: Product used for unknown indication
     Dosage: UNKNOWN
     Route: 048
  8. SULFAMETHOXAZOLE\TRIMETHOPRIM [Suspect]
     Active Substance: SULFAMETHOXAZOLE\TRIMETHOPRIM
     Indication: Product used for unknown indication
     Dosage: UNKNOWN
     Route: 048
  9. TRAMADOL [Suspect]
     Active Substance: TRAMADOL
     Indication: Product used for unknown indication
     Dosage: UNKNOWN
     Route: 065

REACTIONS (3)
  - Completed suicide [Fatal]
  - Cardio-respiratory arrest [Fatal]
  - Toxicity to various agents [Fatal]
